FAERS Safety Report 6599566-5 (Version None)
Quarter: 2010Q1

REPORT INFORMATION
  Report Type: 
  Country: None (occurrence: None)
  Receive Date: 20100224
  Receipt Date: 20100211
  Transmission Date: 20100710
  Serious: Yes (Hospitalization, Other)
  Sender: FDA-Public Use
  Company Number: US-ELI_LILLY_AND_COMPANY-US200911000268

PATIENT
  Sex: Female
  Weight: 59.864 kg

DRUGS (9)
  1. ZYPREXA [Suspect]
     Indication: BIPOLAR DISORDER
     Dosage: 5 MG, EACH EVENING
     Route: 048
     Dates: start: 19990101
  2. TRAZODONE HCL [Concomitant]
     Dosage: 200 MG, EACH EVENING
     Route: 048
  3. SUMATRIPTAN SUCCINATE [Concomitant]
  4. EFFEXOR XR [Concomitant]
     Dosage: 150 MG, 2/D
     Route: 048
  5. ZOLOFT [Concomitant]
     Dosage: 100 MG, EACH MORNING
     Route: 048
  6. LITHIUM [Concomitant]
     Dosage: 300 MG, DAILY (1/D)
  7. ZOCOR [Concomitant]
     Dosage: 20 MG, EACH EVENING
     Route: 048
  8. PREMARIN [Concomitant]
     Dosage: 0.625 MG, DAILY (1/D)
     Route: 048
  9. WARFARIN SODIUM [Concomitant]
     Dosage: 2.5 MG, DAILY (1/D)
     Route: 048

REACTIONS (10)
  - ACUTE MYOCARDIAL INFARCTION [None]
  - ATRIAL FLUTTER [None]
  - CARDIAC FAILURE CONGESTIVE [None]
  - CORONARY ARTERY OCCLUSION [None]
  - DRUG WITHDRAWAL SYNDROME [None]
  - HAEMOGLOBIN DECREASED [None]
  - NAUSEA [None]
  - RENAL FAILURE ACUTE [None]
  - SUPRAVENTRICULAR TACHYCARDIA [None]
  - URINARY TRACT INFECTION [None]
